FAERS Safety Report 7808324-2 (Version None)
Quarter: 2011Q4

REPORT INFORMATION
  Report Type: 
  Country: None (occurrence: None)
  Receive Date: 20111012
  Receipt Date: 20111005
  Transmission Date: 20120403
  Serious: No
  Sender: FDA-Public Use
  Company Number: US-BIOGENIDEC-2011BI038247

PATIENT
  Age: 48 Year
  Sex: Female

DRUGS (3)
  1. IBUPROFEN [Concomitant]
     Indication: PREMEDICATION
     Dates: start: 20110927
  2. AVONEX [Suspect]
     Indication: MULTIPLE SCLEROSIS
     Route: 030
     Dates: start: 20110927
  3. VICODIN (NOS) [Concomitant]
     Indication: PROCEDURAL PAIN
     Dates: start: 20110101

REACTIONS (4)
  - VOMITING [None]
  - INFLUENZA LIKE ILLNESS [None]
  - DIARRHOEA [None]
  - PAIN [None]
